FAERS Safety Report 10365195 (Version 3)
Quarter: 2014Q4

REPORT INFORMATION
  Report Type: Report from Study
  Country: CA (occurrence: CA)
  Receive Date: 20140806
  Receipt Date: 20141217
  Transmission Date: 20150528
  Serious: Yes (Other)
  Sender: FDA-Public Use
  Company Number: CA-JNJFOC-20140800861

PATIENT
  Sex: Female
  Weight: 79 kg

DRUGS (4)
  1. CORTIFOAM [Concomitant]
     Active Substance: HYDROCORTISONE ACETATE
     Route: 065
  2. SALOFALK [Concomitant]
     Active Substance: MESALAMINE
     Route: 065
  3. REMICADE [Suspect]
     Active Substance: INFLIXIMAB
     Indication: CROHN^S DISEASE
     Route: 042
     Dates: start: 20090508
  4. METHOTREXATE [Concomitant]
     Active Substance: METHOTREXATE
     Route: 065

REACTIONS (5)
  - Frequent bowel movements [Not Recovered/Not Resolved]
  - Skin cancer [Unknown]
  - C-reactive protein increased [Unknown]
  - Rectal haemorrhage [Not Recovered/Not Resolved]
  - Diarrhoea [Not Recovered/Not Resolved]
